FAERS Safety Report 6579720-9 (Version None)
Quarter: 2010Q1

REPORT INFORMATION
  Report Type: 
  Country: None (occurrence: None)
  Receive Date: 20100212
  Receipt Date: 20100210
  Transmission Date: 20100710
  Serious: Yes (Other)
  Sender: FDA-Public Use
  Company Number: A0808682A

PATIENT
  Age: 18 Year

DRUGS (1)
  1. LAMICTAL XR [Suspect]
     Indication: EPILEPSY
     Route: 048

REACTIONS (3)
  - CONVULSION [None]
  - MEDICATION RESIDUE [None]
  - PRODUCT QUALITY ISSUE [None]
